FAERS Safety Report 4279644-6 (Version None)
Quarter: 2004Q1

REPORT INFORMATION
  Report Type: 
  Country: None (occurrence: None)
  Receive Date: 20040126
  Receipt Date: 20040126
  Transmission Date: 20041129
  Serious: Yes (Hospitalization)
  Sender: FDA-Public Use
  Company Number: None

PATIENT
  Sex: Male
  Weight: 55.9 kg

DRUGS (1)
  1. IOHEXOL [Suspect]
     Indication: ARTERIOGRAM CAROTID
     Dates: start: 20031105

REACTIONS (1)
  - CONVULSION [None]
